FAERS Safety Report 8414883-1 (Version None)
Quarter: 2012Q2

REPORT INFORMATION
  Report Type: 
  Country: None (occurrence: None)
  Receive Date: 20120601
  Receipt Date: 20120601
  Transmission Date: 20120825
  Serious: Yes (Hospitalization)
  Sender: FDA-Public Use
  Company Number: None

PATIENT
  Age: 64 Year
  Sex: Male
  Weight: 95.4 kg

DRUGS (1)
  1. PREDNISONE TAB [Suspect]
     Dosage: MG PO
     Route: 048
     Dates: start: 20120214, end: 20120308

REACTIONS (2)
  - MENTAL STATUS CHANGES [None]
  - CONDITION AGGRAVATED [None]
